FAERS Safety Report 4930435-X (Version None)
Quarter: 2006Q1

REPORT INFORMATION
  Report Type: 
  Country: None (occurrence: None)
  Receive Date: 20060118
  Receipt Date: 20050825
  Transmission Date: 20060701
  Serious: No
  Sender: FDA-Public Use
  Company Number: 2005001678

PATIENT
  Sex: Female

DRUGS (6)
  1. TARCEVA [Suspect]
     Indication: NON-SMALL CELL LUNG CANCER
     Dosage: 150 MG (QD), ORAL
     Route: 048
  2. STEROIDS [Concomitant]
  3. DILANTIN [Concomitant]
  4. VITAMINS (VITAMINS) [Concomitant]
  5. STOOL SOFTENER (DOCUSATE SODIUM) [Concomitant]
  6. POTASSIUM (POTASSIUM) [Concomitant]

REACTIONS (2)
  - CONSTIPATION [None]
  - DIARRHOEA [None]
